FAERS Safety Report 5223410-1 (Version None)
Quarter: 2007Q1

REPORT INFORMATION
  Report Type: 
  Country: None (occurrence: None)
  Receive Date: 20070124
  Receipt Date: 20070115
  Transmission Date: 20070707
  Serious: Yes (Hospitalization)
  Sender: FDA-Public Use
  Company Number: FRWYE194517JAN07

PATIENT
  Age: 25 Year
  Sex: Female

DRUGS (3)
  1. EFFEXOR [Suspect]
     Dosage: OVERDOSE AMOUNT:  750 MG ORAL
     Route: 048
     Dates: start: 20030901, end: 20030901
  2. BUSPIRONE HCL [Suspect]
     Dosage: OVERDOSE AMOUNT:  400 MMG ORAL
     Route: 048
     Dates: start: 20030901, end: 20030901
  3. PROZAC [Suspect]
     Dosage: OVERDOSE AMOUNT:  600 MG ORAL
     Route: 048
     Dates: start: 20030901, end: 20030901

REACTIONS (5)
  - ELECTROCARDIOGRAM REPOLARISATION ABNORMALITY [None]
  - MULTIPLE DRUG OVERDOSE [None]
  - MYDRIASIS [None]
  - REFUSAL OF TREATMENT BY PATIENT [None]
  - SEROTONIN SYNDROME [None]
